FAERS Safety Report 7818065-3 (Version None)
Quarter: 2011Q4

REPORT INFORMATION
  Report Type: 
  Country: None (occurrence: None)
  Receive Date: 20111017
  Receipt Date: 20110928
  Transmission Date: 20120403
  Serious: Yes (Other)
  Sender: FDA-Public Use
  Company Number: US-PURDUE-USA-2011-0072978

PATIENT
  Sex: Male
  Weight: 57.143 kg

DRUGS (4)
  1. BUTRANS [Suspect]
     Indication: PRODUCT USED FOR UNKNOWN INDICATION
     Dosage: 10 MCG/HR, UNK
     Route: 062
     Dates: start: 20110613, end: 20110727
  2. VICODIN [Concomitant]
     Indication: PAIN
     Dosage: 1 TABLET, TID
     Route: 048
     Dates: start: 20100505
  3. BUTRANS [Suspect]
     Dosage: 5 MCG/HR, DAILY
     Route: 062
  4. NEURONTIN [Concomitant]
     Indication: PAIN
     Dosage: 300 MG, UNK
     Route: 048
     Dates: start: 20100621

REACTIONS (1)
  - SKIN LESION [None]
